FAERS Safety Report 12084089 (Version 2)
Quarter: 2018Q4

REPORT INFORMATION
  Report Type: Spontaneous
  Country: PT (occurrence: PT)
  Receive Date: 20160217
  Receipt Date: 20181226
  Transmission Date: 20190204
  Serious: Yes (Other)
  Sender: FDA-Public Use
  Company Number: PHHY2016PT020270

PATIENT
  Age: 80 Year
  Sex: Female

DRUGS (5)
  1. HYDROXYCHLOROQUINE [Concomitant]
     Active Substance: HYDROXYCHLOROQUINE
     Indication: SKIN LESION
     Dosage: UNK
     Route: 065
  2. LETROZOLE. [Suspect]
     Active Substance: LETROZOLE
     Indication: INTRADUCTAL PROLIFERATIVE BREAST LESION
     Dosage: 2.5 MG, QD
     Route: 065
     Dates: start: 201010
  3. ACITRETIN. [Suspect]
     Active Substance: ACITRETIN
     Indication: INTRADUCTAL PROLIFERATIVE BREAST LESION
     Dosage: 25 MG, QD
     Route: 065
  4. THALIDOMIDE [Concomitant]
     Active Substance: THALIDOMIDE
     Indication: INTRADUCTAL PROLIFERATIVE BREAST LESION
     Dosage: 50 MG, QD
     Route: 065
  5. HYDROXYCHLOROQUINE [Concomitant]
     Active Substance: HYDROXYCHLOROQUINE
     Indication: CUTANEOUS LUPUS ERYTHEMATOSUS

REACTIONS (3)
  - Hormone level abnormal [Recovering/Resolving]
  - Cutaneous lupus erythematosus [Recovering/Resolving]
  - Drug resistance [Unknown]

NARRATIVE: CASE EVENT DATE: 201011
